FAERS Safety Report 19964609 (Version 1)
Quarter: 2021Q4

REPORT INFORMATION
  Report Type: Spontaneous
  Country: US (occurrence: US)
  Receive Date: 20211018
  Receipt Date: 20211018
  Transmission Date: 20220303
  Serious: No
  Sender: FDA-Public Use
  Company Number: US-ORGANON-O2110USA001451

PATIENT
  Age: 0 Year

DRUGS (1)
  1. NEXPLANON [Suspect]
     Active Substance: ETONOGESTREL
     Dosage: ONE EVERY THREE YEARS
     Route: 064
     Dates: start: 2018

REACTIONS (2)
  - Premature baby [Unknown]
  - Foetal exposure during delivery [Recovered/Resolved]

NARRATIVE: CASE EVENT DATE: 20210209
